FAERS Safety Report 14762411 (Version 2)
Quarter: 2018Q2

REPORT INFORMATION
  Report Type: Report from Study
  Country: JP (occurrence: JP)
  Receive Date: 20180416
  Receipt Date: 20180525
  Transmission Date: 20180711
  Serious: Yes (Death, Hospitalization, Other)
  Sender: FDA-Public Use
  Company Number: JP-UCBSA-2018008571

PATIENT
  Age: 75 Year
  Sex: Male
  Weight: 60 kg

DRUGS (8)
  1. SELENICA-R [Suspect]
     Active Substance: VALPROATE SODIUM
     Indication: FOCAL DYSCOGNITIVE SEIZURES
     Dosage: 800 MG DAILY
     Route: 048
     Dates: start: 20171124, end: 20171218
  2. SELENICA-R [Suspect]
     Active Substance: VALPROATE SODIUM
     Dosage: 400 MG DAILY
     Route: 048
     Dates: start: 20171219, end: 20171226
  3. SELENICA-R [Suspect]
     Active Substance: VALPROATE SODIUM
     Dosage: 200 MG DAILY
     Route: 048
     Dates: start: 20171231, end: 20180105
  4. LACOSAMIDE. [Suspect]
     Active Substance: LACOSAMIDE
     Indication: FOCAL DYSCOGNITIVE SEIZURES
     Dosage: 50 MG, 2X/DAY (BID)
     Route: 048
     Dates: start: 20171207, end: 20171214
  5. SELENICA-R [Suspect]
     Active Substance: VALPROATE SODIUM
     Dosage: 100 MG DAILY
     Route: 048
     Dates: start: 20180106, end: 20180113
  6. SELENICA-R [Suspect]
     Active Substance: VALPROATE SODIUM
     Dosage: 300 MG DAILY
     Route: 048
     Dates: start: 20171227, end: 20171230
  7. LACOSAMIDE. [Suspect]
     Active Substance: LACOSAMIDE
     Indication: PARTIAL SEIZURES WITH SECONDARY GENERALISATION
     Dosage: 100 MG, 2X/DAY (BID)
     Route: 048
     Dates: start: 20171214, end: 20180220
  8. SELENICA-R [Suspect]
     Active Substance: VALPROATE SODIUM
     Indication: PARTIAL SEIZURES WITH SECONDARY GENERALISATION
     Dosage: 400 MG DAILY
     Route: 048
     Dates: start: 2006, end: 20171123

REACTIONS (5)
  - Near drowning [Fatal]
  - Drug dose omission [Unknown]
  - Bradykinesia [Recovering/Resolving]
  - Epilepsy [Fatal]
  - Dizziness [Recovering/Resolving]

NARRATIVE: CASE EVENT DATE: 20171219
